FAERS Safety Report 8439660-7 (Version None)
Quarter: 2012Q2

REPORT INFORMATION
  Report Type: 
  Country: None (occurrence: None)
  Receive Date: 20120615
  Receipt Date: 20120606
  Transmission Date: 20120825
  Serious: Yes (Hospitalization)
  Sender: FDA-Public Use
  Company Number: CH-SANOFI-AVENTIS-2012SA040547

PATIENT
  Age: 68 Year
  Sex: Male

DRUGS (11)
  1. CYMBALTA [Suspect]
     Route: 048
  2. SINTROM [Suspect]
     Route: 048
     Dates: end: 20120113
  3. LITHIUM CARBONATE [Concomitant]
     Route: 065
  4. FLUOXETINE HYDROCHLORIDE [Suspect]
     Route: 048
  5. PRAVASTATIN SODIUM [Concomitant]
     Route: 065
  6. ENTUMIN [Concomitant]
     Route: 065
  7. FLURAZEPAM HYDROCHLORIDE [Concomitant]
     Route: 065
  8. PLAVIX [Suspect]
     Route: 048
     Dates: end: 20120113
  9. TRAZODONE HCL [Concomitant]
     Route: 065
  10. METFORMIN HCL [Concomitant]
     Route: 065
  11. TAMSULOSIN HYDROCHLORIDE [Concomitant]

REACTIONS (3)
  - ANAEMIA [None]
  - DRUG INTERACTION [None]
  - GASTROINTESTINAL HAEMORRHAGE [None]
